FAERS Safety Report 8852665 (Version 1)
Quarter: 2012Q4

REPORT INFORMATION
  Report Type: 
  Country: US (occurrence: US)
  Receive Date: 20121022
  Receipt Date: 20121022
  Transmission Date: 20130627
  Serious: Yes (Hospitalization, Other)
  Sender: FDA-Public Use
  Company Number: US-ACTELION-A-US2012-72761

PATIENT
  Age: 42 Year
  Sex: Female

DRUGS (14)
  1. VELETRI [Suspect]
     Indication: PULMONARY ARTERIAL HYPERTENSION
     Dosage: 20 ng/kg, per min
     Route: 042
     Dates: start: 20110921
  2. WARFARIN [Suspect]
  3. TRACLEER [Concomitant]
     Indication: PULMONARY ARTERIAL HYPERTENSION
     Dosage: 125 mg, bid
     Route: 048
  4. MAGNESIUM OXIDE [Concomitant]
  5. ALDACTONE [Concomitant]
  6. DEMADEX [Concomitant]
  7. ZOFRAN [Concomitant]
  8. ZINC SULFATE [Concomitant]
  9. AMBIEN [Concomitant]
  10. SERTRALINE [Concomitant]
  11. POTASSIUM CHLORIDE [Concomitant]
  12. MULTIVITAMIN [Concomitant]
  13. NORCO [Concomitant]
  14. TRAMADOL [Concomitant]

REACTIONS (10)
  - Upper gastrointestinal haemorrhage [Recovered/Resolved]
  - Coagulopathy [Unknown]
  - Duodenal ulcer [Unknown]
  - Nausea [Recovered/Resolved]
  - Haematemesis [Recovered/Resolved]
  - Abdominal pain upper [Recovered/Resolved]
  - Dyspepsia [Recovered/Resolved]
  - International normalised ratio increased [Unknown]
  - Haemoglobin decreased [Recovered/Resolved]
  - Mental status changes [Unknown]
